FAERS Safety Report 7386864-0 (Version None)
Quarter: 2011Q1

REPORT INFORMATION
  Report Type: 
  Country: None (occurrence: None)
  Receive Date: 20110331
  Receipt Date: 20110324
  Transmission Date: 20110831
  Serious: Yes (Death)
  Sender: FDA-Public Use
  Company Number: US-GENZYME-POMP-1001391

PATIENT

DRUGS (7)
  1. MYOZYME [Suspect]
     Indication: GLYCOGEN STORAGE DISEASE TYPE II
     Dosage: 150 MG, Q2W
     Route: 042
     Dates: start: 20100114
  2. MIRALAX [Concomitant]
     Indication: CONSTIPATION
     Dosage: UNK
     Dates: start: 20100101, end: 20110304
  3. ENALAPRIL MALEATE [Concomitant]
     Indication: CARDIOMYOPATHY
     Dosage: 1.25 MG, QD
     Dates: start: 20100101, end: 20110304
  4. FLOVENT [Concomitant]
     Indication: LUNG DISORDER
     Dosage: 2 UNK, BID
     Dates: start: 20100101, end: 20110304
  5. POLY-VI-FLOR WITH IRON [Concomitant]
     Indication: NUTRITIONAL SUPPORT
     Dosage: 1 ML, QD
     Dates: start: 20100101, end: 20110304
  6. HYDROCHLOROTHIAZIDE [Concomitant]
     Indication: CARDIOMYOPATHY
     Dosage: 12 MG, QD
     Dates: start: 20100101, end: 20110304
  7. VITAMIN D [Concomitant]
     Indication: VITAMIN D DEFICIENCY
     Dosage: 2000 U, QD
     Dates: start: 20100101, end: 20110304

REACTIONS (1)
  - CARDIO-RESPIRATORY ARREST [None]
